FAERS Safety Report 4853979-8 (Version None)
Quarter: 2005Q4

REPORT INFORMATION
  Report Type: 
  Country: None (occurrence: None)
  Receive Date: 20051213
  Receipt Date: 20051128
  Transmission Date: 20060501
  Serious: Yes (Hospitalization)
  Sender: FDA-Public Use
  Company Number: US_0507119863

PATIENT
  Sex: Female

DRUGS (13)
  1. ZYPREXA [Suspect]
     Dosage: 20 MG
     Dates: start: 20040101, end: 20040101
  2. TRICOR [Concomitant]
  3. PROTONIX [Concomitant]
  4. DEPAKOTE-SLOW RELEASE (VALPROATE SEMISODIUM) [Concomitant]
  5. HYDROXYZINE PAMOATE [Concomitant]
  6. ALTACE [Concomitant]
  7. METFORMIN (MFETFORMIN) [Concomitant]
  8. MIRTAZAPINE (MIRTAZAPNE) [Concomitant]
  9. DOXEPIN HCL [Concomitant]
  10. LIPITOR [Concomitant]
  11. DIAZEPAM [Concomitant]
  12. SEROQUEL   /UNK/ (QUETIAPINE FUMARATE) [Concomitant]
  13. AMBIEN [Concomitant]

REACTIONS (9)
  - BLOOD CHOLESTEROL ABNORMAL [None]
  - BLOOD TRIGLYCERIDES INCREASED [None]
  - DIABETES MELLITUS [None]
  - DIABETIC ULCER [None]
  - HYPERTENSION [None]
  - MUMPS [None]
  - OBESITY [None]
  - VISION BLURRED [None]
  - WEIGHT DECREASED [None]
